FAERS Safety Report 8531992-7 (Version None)
Quarter: 2012Q3

REPORT INFORMATION
  Report Type: 
  Country: None (occurrence: None)
  Receive Date: 20120723
  Receipt Date: 20120717
  Transmission Date: 20120928
  Serious: Yes (Hospitalization, Other)
  Sender: FDA-Public Use
  Company Number: US-PFIZER INC-2012132716

PATIENT
  Sex: Female
  Weight: 59.864 kg

DRUGS (6)
  1. CHANTIX [Suspect]
     Dosage: 1 MG, UNKNOWN FREQUENCY
     Route: 048
     Dates: start: 20060101, end: 20060101
  2. CHANTIX [Suspect]
     Dosage: 0.5 MG, UNKNOWN FREQUENCY
     Route: 048
     Dates: start: 20060101, end: 20060101
  3. ATIVAN [Suspect]
     Indication: BIPOLAR DISORDER
     Dosage: 2MG DAILY AT BEDTIME
     Route: 048
  4. CHANTIX [Suspect]
     Indication: SMOKING CESSATION THERAPY
     Dosage: 0.5MG DAILY
     Route: 048
     Dates: start: 20061114, end: 20060101
  5. TRAZODONE HCL [Suspect]
     Indication: BIPOLAR DISORDER
     Dosage: 200 MG, DAILY, AT BEDTIME
  6. TRILEPTAL [Suspect]
     Indication: BIPOLAR DISORDER
     Dosage: 600MG IN MORNING AND 1200MG AT NIGHT, 2X/DAY
     Route: 048

REACTIONS (4)
  - DELUSION [None]
  - PSYCHOTIC DISORDER [None]
  - BIPOLAR DISORDER [None]
  - DRUG INTOLERANCE [None]
